FAERS Safety Report 10880212 (Version 1)
Quarter: 2015Q1

REPORT INFORMATION
  Report Type: Spontaneous
  Country: US (occurrence: US)
  Receive Date: 20150302
  Receipt Date: 20150302
  Transmission Date: 20150721
  Serious: No
  Sender: FDA-Public Use
  Company Number: US-PFIZER INC-2015072010

PATIENT
  Age: 44 Year
  Sex: Female
  Weight: 82 kg

DRUGS (4)
  1. CLONAZEPAM. [Concomitant]
     Active Substance: CLONAZEPAM
     Indication: RESTLESS LEGS SYNDROME
     Dosage: 4 MG, DAILY-AT NIGHT
  2. CLARITIN [Concomitant]
     Active Substance: LORATADINE
     Indication: PRURITUS
     Dosage: 10 MG, DAILY
  3. HYDROXYZINE PAMOATE. [Suspect]
     Active Substance: HYDROXYZINE PAMOATE
     Indication: PRURITUS
     Dosage: 10 MG, DAILY-AT NIGHT
  4. BENADRYL [Concomitant]
     Active Substance: DIPHENHYDRAMINE HYDROCHLORIDE
     Dosage: 25 MG, DAILY-AT NIGHT

REACTIONS (2)
  - Somnolence [Not Recovered/Not Resolved]
  - Hangover [Not Recovered/Not Resolved]

NARRATIVE: CASE EVENT DATE: 20150206
